FAERS Safety Report 5709486-3 (Version None)
Quarter: 2008Q2

REPORT INFORMATION
  Report Type: 
  Country: None (occurrence: None)
  Receive Date: 20080418
  Receipt Date: 20080408
  Transmission Date: 20081010
  Serious: Yes (Hospitalization)
  Sender: FDA-Public Use
  Company Number: FR-ROCHE-557999

PATIENT
  Sex: Male

DRUGS (5)
  1. ROCEPHIN [Suspect]
     Route: 042
     Dates: start: 20070717, end: 20070722
  2. AUGMENTIN '125' [Suspect]
     Route: 048
     Dates: start: 20070716, end: 20070716
  3. AUGMENTIN '125' [Suspect]
     Route: 048
     Dates: start: 20070716, end: 20070716
  4. DEXTRARINE PHENYLBUTAZONE [Suspect]
     Dosage: DOSAGE REGIMEN REPORTED AS 1 DOSE QD.
     Route: 050
     Dates: start: 20070714, end: 20070715
  5. DEXTRARINE PHENYLBUTAZONE [Suspect]
     Dosage: DOSAGE REGIMEN REPORTED AS 1 DOSE QD.
     Route: 050
     Dates: start: 20070714, end: 20070715

REACTIONS (3)
  - DERMATITIS EXFOLIATIVE [None]
  - PYREXIA [None]
  - RASH PUSTULAR [None]
